FAERS Safety Report 4382011-8 (Version None)
Quarter: 2004Q2

REPORT INFORMATION
  Report Type: 
  Country: None (occurrence: None)
  Receive Date: 20040615
  Receipt Date: 20040602
  Transmission Date: 20050107
  Serious: Yes (Life-Threatening, Hospitalization, Other)
  Sender: FDA-Public Use
  Company Number: HQWYE782710MAY04

PATIENT
  Age: 30 Year
  Sex: Female

DRUGS (5)
  1. EFECTIN ER (VENLAFAXINE HYDROCHLORIDE, CAPSULE, EXTENDED RELEASE) [Suspect]
     Dosage: TWENTY-EIGHT 150 MG CAPSULES (4.2 GM) OVERDOSE AMOUNT ORAL
     Route: 048
     Dates: start: 20040109, end: 20040109
  2. SOLIAN (AMISULPRIDE) [Concomitant]
  3. CITALOPRAM HYDROBROMIDE [Concomitant]
  4. LUDIOMIL [Concomitant]
  5. DIAZEPAM [Concomitant]

REACTIONS (3)
  - GRAND MAL CONVULSION [None]
  - INTENTIONAL OVERDOSE [None]
  - SUICIDE ATTEMPT [None]
